FAERS Safety Report 4885583-X (Version None)
Quarter: 2006Q1

REPORT INFORMATION
  Report Type: 
  Country: None (occurrence: None)
  Receive Date: 20060119
  Receipt Date: 20060110
  Transmission Date: 20060701
  Serious: Yes (Hospitalization)
  Sender: FDA-Public Use
  Company Number: NO-MERCK-0601NOR00009

PATIENT
  Age: 49 Year
  Sex: Male

DRUGS (5)
  1. VIOXX [Suspect]
     Indication: HEADACHE
     Route: 048
     Dates: start: 20000701, end: 20021122
  2. PHENYTOIN [Concomitant]
     Indication: EPILEPSY
     Route: 065
  3. SERTRALINE HYDROCHLORIDE [Concomitant]
     Indication: DEPRESSION
     Route: 065
  4. CLONAZEPAM [Concomitant]
     Indication: EPILEPSY
     Route: 065
  5. CHLOROPROCAINE HYDROCHLORIDE [Concomitant]
     Indication: PAIN
     Route: 065

REACTIONS (5)
  - ACUTE MYOCARDIAL INFARCTION [None]
  - ANGINA PECTORIS [None]
  - CHEST PAIN [None]
  - CORONARY ARTERY OCCLUSION [None]
  - TROPONIN I INCREASED [None]
